FAERS Safety Report 5960607-7 (Version None)
Quarter: 2008Q4

REPORT INFORMATION
  Report Type: 
  Country: None (occurrence: None)
  Receive Date: 20081120
  Receipt Date: 20010327
  Transmission Date: 20090506
  Serious: No
  Sender: FDA-Public Use
  Company Number: US-ABBOTT-08P-163-0449897-00

PATIENT

DRUGS (3)
  1. BIAXIN [Suspect]
     Indication: DRUG USE FOR UNKNOWN INDICATION
  2. DIGOXIN [Interacting]
     Indication: DRUG USE FOR UNKNOWN INDICATION
  3. FLAGYL [Interacting]
     Indication: DRUG USE FOR UNKNOWN INDICATION

REACTIONS (2)
  - CHROMATURIA [None]
  - DRUG INTERACTION [None]
